FAERS Safety Report 8558326 (Version 4)
Quarter: 2015Q3

REPORT INFORMATION
  Report Type: Spontaneous
  Country: US (occurrence: US)
  Receive Date: 20120511
  Receipt Date: 20150928
  Transmission Date: 20151125
  Serious: Yes (Other)
  Sender: FDA-Public Use
  Company Number: US-GLAXOSMITHKLINE-A0960239A

PATIENT
  Age: 62 Year
  Sex: Female
  Weight: 59.1 kg

DRUGS (14)
  1. TYKERB [Suspect]
     Active Substance: LAPATINIB DITOSYLATE
     Indication: BREAST CANCER
     Dosage: 1250 MG, QD
     Route: 048
     Dates: start: 20111229, end: 201212
  2. TYKERB [Suspect]
     Active Substance: LAPATINIB DITOSYLATE
     Dosage: 1500 MG, QD
     Route: 048
     Dates: start: 20150725
  3. CALCIUM [Concomitant]
     Active Substance: CALCIUM
  4. PECTIN [Concomitant]
     Active Substance: PECTIN
     Dosage: UNK
  5. CEFTIN [Concomitant]
     Active Substance: CEFUROXIME AXETIL
     Dosage: 500 MG, UNK
  6. ALBUTEROL SULFATE. [Concomitant]
     Active Substance: ALBUTEROL SULFATE
  7. AROMASIN [Concomitant]
     Active Substance: EXEMESTANE
     Dosage: 25 MG, UNK
  8. SLOW-MAG [Concomitant]
     Active Substance: MAGNESIUM CHLORIDE
  9. TRAMADOL HYDROCHLORIDE. [Concomitant]
     Active Substance: TRAMADOL HYDROCHLORIDE
  10. HYDROCODONE/ACETAMINOPHEN [Concomitant]
     Active Substance: ACETAMINOPHEN\HYDROCODONE
  11. LUNESTA [Concomitant]
     Active Substance: ESZOPICLONE
  12. AMBIEN [Suspect]
     Active Substance: ZOLPIDEM TARTRATE
     Dosage: 5 MG, PRN
     Route: 048
     Dates: start: 20120103
  13. NALTREXONE [Concomitant]
     Active Substance: NALTREXONE
     Dosage: 50 MG, UNK
  14. ATIVAN [Concomitant]
     Active Substance: LORAZEPAM

REACTIONS (15)
  - Depression [Unknown]
  - Nausea [Unknown]
  - Chest pain [Not Recovered/Not Resolved]
  - Pruritus generalised [Unknown]
  - Headache [Unknown]
  - Fatigue [Unknown]
  - Eyelid oedema [Recovered/Resolved]
  - Asthenia [Recovered/Resolved]
  - Hand deformity [Unknown]
  - Bronchitis [Not Recovered/Not Resolved]
  - Respiratory tract infection [Unknown]
  - Dry skin [Not Recovered/Not Resolved]
  - Finger deformity [Unknown]
  - Cough [Not Recovered/Not Resolved]
  - Diarrhoea [Recovering/Resolving]

NARRATIVE: CASE EVENT DATE: 201112
